FAERS Safety Report 5630543-4 (Version None)
Quarter: 2008Q1

REPORT INFORMATION
  Report Type: 
  Country: None (occurrence: None)
  Receive Date: 20080219
  Receipt Date: 20080219
  Transmission Date: 20080703
  Serious: Yes (Other)
  Sender: FDA-Public Use
  Company Number: A0710528A

PATIENT
  Age: 55 Year
  Sex: Male

DRUGS (7)
  1. ALLI [Suspect]
     Indication: WEIGHT LOSS DIET
     Dosage: 3CAP PER DAY
     Route: 048
     Dates: start: 20080201
  2. BENICAR HCT [Concomitant]
  3. LORTAB [Concomitant]
  4. NAPROXEN [Concomitant]
  5. VALIUM [Concomitant]
  6. ALBUTEROL [Concomitant]
  7. ASPIRIN [Concomitant]

REACTIONS (4)
  - HAEMATOCHEZIA [None]
  - HAEMORRHOIDAL HAEMORRHAGE [None]
  - PHARMACEUTICAL PRODUCT COMPLAINT [None]
  - RECTAL HAEMORRHAGE [None]
